FAERS Safety Report 4280549-5 (Version None)
Quarter: 2004Q1

REPORT INFORMATION
  Report Type: 
  Country: None (occurrence: None)
  Receive Date: 20040127
  Receipt Date: 20040116
  Transmission Date: 20041129
  Serious: Yes (Hospitalization)
  Sender: FDA-Public Use
  Company Number: 2003177629SE

PATIENT
  Age: 60 Year
  Sex: Female
  Weight: 64.5 kg

DRUGS (4)
  1. PHARMORUBICIN RD (EPIRUBICIN HYDROCHLORIDE) POWDER, STERILE [Suspect]
     Indication: BREAST CANCER
     Dosage: 153 MG,CYCLIC
     Dates: start: 20030731, end: 20030911
  2. FLUOROURACIL [Suspect]
     Indication: BREAST CANCER
     Dosage: 1020 MG, CYCLIC
     Dates: start: 20030731, end: 20030911
  3. CYCLOPHOSPHAMIDE [Suspect]
     Indication: BREAST CANCER
     Dosage: 2040 MG,CYCLIC
     Dates: start: 20030731, end: 20030911
  4. ATENOLOL [Concomitant]

REACTIONS (2)
  - DIZZINESS [None]
  - HYPOTENSION [None]
